FAERS Safety Report 18086896 (Version 1)
Quarter: 2020Q3

REPORT INFORMATION
  Report Type: Spontaneous
  Country: US (occurrence: US)
  Receive Date: 20200729
  Receipt Date: 20200729
  Transmission Date: 20201103
  Serious: No
  Sender: FDA-Public Use
  Company Number: None

PATIENT
  Age: 56 Year
  Sex: Male

DRUGS (1)
  1. VOTRIENT [Suspect]
     Active Substance: PAZOPANIB HYDROCHLORIDE
     Route: 048
     Dates: start: 20200722

REACTIONS (4)
  - Mass [None]
  - Laboratory test [None]
  - Anticoagulant therapy [None]
  - Haemoptysis [None]

NARRATIVE: CASE EVENT DATE: 20200729
